FAERS Safety Report 22852597 (Version 4)
Quarter: 2023Q4

REPORT INFORMATION
  Report Type: Spontaneous
  Country: CH (occurrence: CH)
  Receive Date: 20230823
  Receipt Date: 20231116
  Transmission Date: 20240109
  Serious: Yes (Other)
  Sender: FDA-Public Use
  Company Number: CH-JNJFOC-20230325169

PATIENT
  Age: 34 Year
  Sex: Female
  Weight: 55 kg

DRUGS (10)
  1. STELARA [Suspect]
     Active Substance: USTEKINUMAB
     Indication: Colitis ulcerative
     Route: 058
     Dates: start: 202110
  2. STELARA [Suspect]
     Active Substance: USTEKINUMAB
     Indication: Crohn^s disease
     Route: 058
     Dates: start: 202202
  3. STELARA [Suspect]
     Active Substance: USTEKINUMAB
     Route: 040
     Dates: start: 202203
  4. URSODIOL [Concomitant]
     Active Substance: URSODIOL
     Dosage: VARIABLE?SEVERAL TIMES DURING SS
     Route: 048
  5. URSODIOL [Concomitant]
     Active Substance: URSODIOL
     Route: 048
  6. CEDAR [Concomitant]
     Route: 048
  7. CALCIUM\CHOLECALCIFEROL [Concomitant]
     Active Substance: CALCIUM\CHOLECALCIFEROL
     Route: 048
  8. FOLIC ACID [Concomitant]
     Active Substance: FOLIC ACID
  9. PREDNISOLONE [Concomitant]
     Active Substance: PREDNISOLONE
     Dosage: 5 - 30 MG
     Route: 065
     Dates: start: 202303
  10. BUDESONIDE [Concomitant]
     Active Substance: BUDESONIDE
     Route: 048
     Dates: start: 202102

REACTIONS (8)
  - Crohn^s disease [Unknown]
  - Cholangitis sclerosing [Unknown]
  - Drug ineffective [Unknown]
  - Off label use [Unknown]
  - Exposure during pregnancy [Recovered/Resolved]
  - Drug level decreased [Unknown]
  - Norovirus infection [Unknown]
  - Iron deficiency anaemia [Unknown]
